FAERS Safety Report 19866759 (Version 3)
Quarter: 2025Q4

REPORT INFORMATION
  Report Type: Spontaneous
  Country: US (occurrence: US)
  Receive Date: 20210922
  Receipt Date: 20251231
  Transmission Date: 20260118
  Serious: Yes (Other)
  Sender: NOVARTIS
  Company Number: US-002147023-NVSC2021US205478

PATIENT
  Age: 73 Year
  Sex: Female

DRUGS (3)
  1. COSENTYX [Suspect]
     Active Substance: SECUKINUMAB
     Indication: Psoriasis
     Dosage: 300 MG, Q4W (*INJECTION NOS)
     Route: 050
     Dates: start: 20170307, end: 20180415
  2. COSENTYX [Suspect]
     Active Substance: SECUKINUMAB
     Dosage: 300 MG, Q4W (*INJECTION NOS)
     Route: 050
     Dates: start: 20180715, end: 20181115
  3. COSENTYX [Suspect]
     Active Substance: SECUKINUMAB
     Dosage: 300 MG, Q4W (*INJECTION NOS)
     Route: 050
     Dates: start: 20190328

REACTIONS (3)
  - Ulcerative keratitis [Unknown]
  - Bronchitis [Unknown]
  - Sinusitis [Unknown]

NARRATIVE: CASE EVENT DATE: 20210601
